FAERS Safety Report 8828141 (Version 1)
Quarter: 2012Q4

REPORT INFORMATION
  Report Type: 
  Country: US (occurrence: US)
  Receive Date: 20121005
  Receipt Date: 20121005
  Transmission Date: 20130627
  Serious: No
  Sender: FDA-Public Use
  Company Number: US-PFIZER INC-2012243676

PATIENT
  Age: 87 Year
  Sex: Female

DRUGS (3)
  1. ANTIVERT [Suspect]
     Indication: VERTIGO
     Dosage: UNK
  2. ATIVAN [Suspect]
     Indication: ANXIETY
     Dosage: 0.25 mg, daily
  3. ALLEGRA [Suspect]
     Indication: VERTIGO
     Dosage: 30 mg, 2x/day
     Route: 048
     Dates: start: 201205

REACTIONS (5)
  - Feeling abnormal [Not Recovered/Not Resolved]
  - Dizziness [Not Recovered/Not Resolved]
  - Balance disorder [Not Recovered/Not Resolved]
  - Condition aggravated [Not Recovered/Not Resolved]
  - Off label use [Unknown]
